FAERS Safety Report 5805153-6 (Version None)
Quarter: 2008Q3

REPORT INFORMATION
  Report Type: 
  Country: None (occurrence: None)
  Receive Date: 20080709
  Receipt Date: 20080702
  Transmission Date: 20090109
  Serious: Yes (Hospitalization)
  Sender: FDA-Public Use
  Company Number: US-GENENTECH-263604

PATIENT
  Sex: Female
  Weight: 63.5 kg

DRUGS (8)
  1. BEVACIZUMAB [Suspect]
     Indication: ENDOMETRIAL CANCER
     Dosage: 15 MG/KG, UNK
     Route: 042
     Dates: start: 20080618
  2. PACLITAXEL [Concomitant]
     Indication: ENDOMETRIAL CANCER
     Dosage: 175 MG/M2, UNK
  3. CARBOPLATIN [Concomitant]
     Indication: ENDOMETRIAL CANCER
  4. ANZEMET [Concomitant]
     Indication: DRUG USE FOR UNKNOWN INDICATION
  5. CIMETIDINE [Concomitant]
     Indication: DRUG USE FOR UNKNOWN INDICATION
  6. DEXAMETHASONE [Concomitant]
     Indication: DRUG USE FOR UNKNOWN INDICATION
  7. DIPHENHYDRAMINE HCL [Concomitant]
     Indication: DRUG USE FOR UNKNOWN INDICATION
  8. LEVOTHYROXINE SODIUM [Concomitant]
     Indication: DRUG USE FOR UNKNOWN INDICATION

REACTIONS (1)
  - INTESTINAL PROLAPSE [None]
